FAERS Safety Report 6060252-1 (Version None)
Quarter: 2009Q1

REPORT INFORMATION
  Report Type: 
  Country: None (occurrence: None)
  Receive Date: 20090129
  Receipt Date: 20090116
  Transmission Date: 20090719
  Serious: Yes (Death)
  Sender: FDA-Public Use
  Company Number: 2009000179

PATIENT
  Age: 67 Year
  Sex: Female

DRUGS (5)
  1. TARCEVA [Suspect]
     Indication: LUNG NEOPLASM MALIGNANT
     Dosage: (150 MG,QD),ORAL
     Route: 048
     Dates: start: 20081020, end: 20081231
  2. PANTORC (PANTOPRAZOLE SODIUM) [Concomitant]
  3. ENOXAPARIN SODIUM [Concomitant]
  4. DELTA-CORTEF [Concomitant]
  5. RYTMONORM (PROPAFENONE HYDROCHLORIDE) [Concomitant]

REACTIONS (5)
  - HEPATORENAL FAILURE [None]
  - HYPOTENSION [None]
  - METABOLIC ACIDOSIS [None]
  - NAUSEA [None]
  - VOMITING [None]
